FAERS Safety Report 12324635 (Version 2)
Quarter: 2016Q2

REPORT INFORMATION
  Report Type: Spontaneous
  Country: US (occurrence: US)
  Receive Date: 20160502
  Receipt Date: 20160502
  Transmission Date: 20160815
  Serious: Yes (Hospitalization)
  Sender: FDA-Public Use
  Company Number: US-JUBILANT CADISTA PHARMACEUTICALS-2015JUB00425

PATIENT
  Age: 76 Year
  Sex: Female
  Weight: 61.68 kg

DRUGS (29)
  1. GABAPENTIN. [Concomitant]
     Active Substance: GABAPENTIN
     Indication: NEURALGIA
     Dosage: 300 MG, 2X/DAY
  2. BACLOFEN. [Concomitant]
     Active Substance: BACLOFEN
     Dosage: 10 MG, 2X/DAY
  3. PROVENTIL [Concomitant]
     Active Substance: ALBUTEROL
  4. UNSPECIFIED MEDICATION(S) TO MAKE HER BONES STRONGER [Concomitant]
  5. PAROXETINE. [Concomitant]
     Active Substance: PAROXETINE
  6. PREDNISONE. [Suspect]
     Active Substance: PREDNISONE
     Indication: SJOGREN^S SYNDROME
  7. POTASSIUM [Concomitant]
     Active Substance: POTASSIUM
     Dosage: UNK, 3X/DAY
  8. DICYCLOMINE [Concomitant]
     Active Substance: DICYCLOMINE HYDROCHLORIDE
  9. PILOCARPINE. [Concomitant]
     Active Substance: PILOCARPINE
     Dosage: UNK
  10. AMLODIPINE [Suspect]
     Active Substance: AMLODIPINE BESYLATE
     Dosage: UNK, 1X/DAY
  11. RANEXA [Concomitant]
     Active Substance: RANOLAZINE
     Indication: PULMONARY ARTERIAL PRESSURE
     Dosage: 2 TABLETS, 1X/DAY
     Route: 048
     Dates: start: 201410, end: 201505
  12. RANEXA [Concomitant]
     Active Substance: RANOLAZINE
     Dosage: 1 TABLETS, 1X/DAY
     Dates: start: 201505, end: 201511
  13. PROZAC [Concomitant]
     Active Substance: FLUOXETINE HYDROCHLORIDE
     Indication: DEPRESSION
     Dosage: UNK
     Dates: start: 20160303
  14. FERROUS SULFATE. [Concomitant]
     Active Substance: FERROUS SULFATE
     Dosage: UNK, 2X/DAY
  15. CALCIUM WITH VITAMIN D [Concomitant]
     Active Substance: CALCIUM\VITAMIN D
     Dosage: UNK
  16. OMEPRAZOLE. [Concomitant]
     Active Substance: OMEPRAZOLE
     Dosage: 40 MG, 2X/DAY
  17. CLONAZEPAM. [Concomitant]
     Active Substance: CLONAZEPAM
     Dosage: 0.5 MG, UNK
  18. TRAZODONE [Concomitant]
     Active Substance: TRAZODONE HYDROCHLORIDE
     Dosage: 100 MG, 1X/DAY
  19. REVATIO [Concomitant]
     Active Substance: SILDENAFIL CITRATE
     Indication: PULMONARY HYPERTENSION
     Dosage: 20 MG, 3X/DAY
     Dates: start: 2005
  20. PRAVASTATIN [Concomitant]
     Active Substance: PRAVASTATIN\PRAVASTATIN SODIUM
     Dosage: 4 DOSAGE UNITS, 1X/DAY
  21. HYDROCODONE [Concomitant]
     Active Substance: HYDROCODONE
     Indication: PAIN
     Dosage: 7.5 MG, UNK
  22. PLAVIX [Concomitant]
     Active Substance: CLOPIDOGREL BISULFATE
     Dosage: 75 MG, UNK
  23. PERCOCET [Concomitant]
     Active Substance: ACETAMINOPHEN\OXYCODONE HYDROCHLORIDE
  24. PRAMIPEXOLE. [Concomitant]
     Active Substance: PRAMIPEXOLE
     Dosage: UNK, 1X/DAY
  25. SUCRALFATE. [Concomitant]
     Active Substance: SUCRALFATE
     Dosage: UNK, 3X/DAY
  26. PREDNISONE. [Suspect]
     Active Substance: PREDNISONE
     Indication: DYSPNOEA
     Dosage: 30 MG, 1X/DAY
     Dates: start: 201510, end: 20151022
  27. RANEXA [Concomitant]
     Active Substance: RANOLAZINE
     Dosage: 2 TABLETS, 1X/DAY
     Dates: start: 201511
  28. ^A SHOT^ EVERY 6 MONTHS FOR HER BONES [Concomitant]
  29. LASIX [Concomitant]
     Active Substance: FUROSEMIDE
     Dosage: 80 MG, 1X/DAY

REACTIONS (14)
  - Fatigue [Unknown]
  - Dehydration [Unknown]
  - Asthenia [Unknown]
  - Fluid retention [Recovering/Resolving]
  - Syncope [Recovered/Resolved]
  - Weight increased [Recovering/Resolving]
  - Abdominal distension [Unknown]
  - Treatment noncompliance [Unknown]
  - Acute kidney injury [None]
  - Dyspnoea [Unknown]
  - Drug ineffective for unapproved indication [Unknown]
  - Blood disorder [Unknown]
  - Chronic obstructive pulmonary disease [Unknown]
  - Hypokalaemia [Unknown]

NARRATIVE: CASE EVENT DATE: 201510
